FAERS Safety Report 18349457 (Version 2)
Quarter: 2020Q4

REPORT INFORMATION
  Report Type: Not Available
  Country: US (occurrence: US)
  Receive Date: 20201006
  Receipt Date: 20201030
  Transmission Date: 20210114
  Serious: Yes (Hospitalization)
  Sender: FDA-Public Use
  Company Number: US-NEUROCRINE BIOSCIENCES INC.-2020NBI03515

PATIENT
  Age: 78 Year
  Sex: Male

DRUGS (19)
  1. SIMVASTATIN. [Concomitant]
     Active Substance: SIMVASTATIN
     Route: 048
  2. INGREZZA [Suspect]
     Active Substance: VALBENAZINE
     Route: 048
     Dates: start: 20200817, end: 20201026
  3. ROPINIROLE. [Concomitant]
     Active Substance: ROPINIROLE
     Dosage: IN THE EVENING
     Route: 048
     Dates: start: 20201013
  4. LORATADINE. [Concomitant]
     Active Substance: LORATADINE
     Route: 048
  5. INGREZZA [Suspect]
     Active Substance: VALBENAZINE
     Indication: TARDIVE DYSKINESIA
     Route: 048
     Dates: start: 20200402, end: 20200813
  6. OXYCODONE [Concomitant]
     Active Substance: OXYCODONE
  7. ACETAMINOPHEN. [Concomitant]
     Active Substance: ACETAMINOPHEN
     Route: 048
  8. CALCIUM CARBONATE. [Concomitant]
     Active Substance: CALCIUM CARBONATE
     Dosage: CALCIUM (500MG) - CHEW AND SWALLOW 60 MG THREE TIMES DAILY
  9. MELATONIN [Concomitant]
     Active Substance: MELATONIN
     Indication: RAPID EYE MOVEMENT SLEEP BEHAVIOUR DISORDER
     Dosage: AT BEDTIME
     Route: 048
  10. ROPINIROLE. [Concomitant]
     Active Substance: ROPINIROLE
  11. GABAPENTIN. [Concomitant]
     Active Substance: GABAPENTIN
  12. METOPROLOL TARTRATE. [Concomitant]
     Active Substance: METOPROLOL TARTRATE
  13. OMEPRAZOLE. [Concomitant]
     Active Substance: OMEPRAZOLE
  14. ONDANSETRON [Concomitant]
     Active Substance: ONDANSETRON
     Dosage: DISSOLVE 4MG ON TONGUE AND SWALLOW
  15. INGREZZA [Suspect]
     Active Substance: VALBENAZINE
     Dates: start: 2020, end: 2020
  16. ASPIRIN. [Concomitant]
     Active Substance: ASPIRIN
     Route: 048
  17. TRAZODONE [Concomitant]
     Active Substance: TRAZODONE HYDROCHLORIDE
     Dosage: AT BEDTIME
  18. VICODIN [Concomitant]
     Active Substance: ACETAMINOPHEN\HYDROCODONE BITARTRATE
     Dosage: 5MG/325MG - IN THE EVENING
     Route: 048
  19. LIDOCAINE HCL [Concomitant]
     Active Substance: LIDOCAINE HYDROCHLORIDE
     Dosage: SWISH 1 TABLESPOONFUL (15ML) AROUND IN THE MOUTH AND THEN SPIT OUT EVERY 3 HRS AS NEEDED (NO MORE TH

REACTIONS (11)
  - Renal impairment [Unknown]
  - Nasopharyngitis [Unknown]
  - Dementia [Unknown]
  - Dehydration [Unknown]
  - Dyskinesia [Not Recovered/Not Resolved]
  - Weight decreased [Unknown]
  - Transient ischaemic attack [Not Recovered/Not Resolved]
  - Pneumonia [Not Recovered/Not Resolved]
  - Mental status changes [Unknown]
  - Fall [Recovered/Resolved]
  - Sedation [Unknown]

NARRATIVE: CASE EVENT DATE: 202008
